FAERS Safety Report 20994654 (Version 1)
Quarter: 2022Q2

REPORT INFORMATION
  Report Type: Spontaneous
  Country: GB (occurrence: GB)
  Receive Date: 20220622
  Receipt Date: 20220622
  Transmission Date: 20220720
  Serious: Yes (Other)
  Sender: FDA-Public Use
  Company Number: None

PATIENT
  Age: 65 Year
  Sex: Female
  Weight: 66 kg

DRUGS (10)
  1. APIXABAN [Suspect]
     Active Substance: APIXABAN
     Indication: Chest pain
     Dosage: UNK
     Route: 048
  2. APIXABAN [Concomitant]
     Active Substance: APIXABAN
     Dosage: 1 DOSAGE FORM, BID (ONE TABLET TWICE A DAY)
     Route: 065
     Dates: start: 20220517, end: 20220606
  3. APIXABAN [Concomitant]
     Active Substance: APIXABAN
     Dosage: 1 DOSAGE FORM, BID (ONE TABLET TWICE A DAY)
     Route: 065
     Dates: start: 20220517
  4. BISOPROLOL [Concomitant]
     Active Substance: BISOPROLOL
     Dosage: 1 DOSAGE FORM, QD (ONE DAILY)
     Route: 065
     Dates: start: 20220429
  5. CHLORAMPHENICOL [Concomitant]
     Active Substance: CHLORAMPHENICOL
     Dosage: QID (QID)
     Route: 065
     Dates: start: 20220429
  6. METRONIDAZOLE [Concomitant]
     Active Substance: METRONIDAZOLE
     Dosage: 1 DOSAGE FORM, BID (ONE TWICE A DAY ( AVOID ALCOHOL ))
     Route: 065
     Dates: start: 20220407
  7. METRONIDAZOLE [Concomitant]
     Active Substance: METRONIDAZOLE
     Dosage: 1 DOSAGE FORM, BID (ONE TWICE A DAY ( AVOID ALCOHOL ))
     Route: 065
     Dates: start: 20220411
  8. PREDNISOLONE [Concomitant]
     Active Substance: PREDNISOLONE
     Dosage: UNK, PRN (AS NEEDED FOR WEANING)
     Route: 065
     Dates: start: 20220428
  9. RIVAROXABAN [Concomitant]
     Active Substance: RIVAROXABAN
     Dosage: 1 DOSAGE FORM (TAKE ONE WITH FOOD)
     Route: 065
     Dates: start: 20220608
  10. RIVAROXABAN [Concomitant]
     Active Substance: RIVAROXABAN
     Dosage: 1 DOSAGE FORM (ONCE A DAY WITH FOOD)
     Route: 065
     Dates: start: 20220606

REACTIONS (1)
  - Depressed level of consciousness [Recovered/Resolved]
